FAERS Safety Report 19118597 (Version 2)
Quarter: 2022Q4

REPORT INFORMATION
  Report Type: Spontaneous
  Country: US (occurrence: US)
  Receive Date: 20210409
  Receipt Date: 20221018
  Transmission Date: 20230113
  Serious: No
  Sender: FDA-Public Use
  Company Number: US-BRISTOL-MYERS SQUIBB COMPANY-BMS-2021-034792

PATIENT
  Age: 12 Year
  Sex: Female

DRUGS (2)
  1. SPRYCEL [Suspect]
     Active Substance: DASATINIB
     Indication: Chronic myeloid leukaemia
     Dosage: 100 MILLIGRAM, DAILY
     Route: 048
     Dates: start: 202012
  2. SPRYCEL [Suspect]
     Active Substance: DASATINIB
     Dosage: 100 MILLIGRAM, DAILY
     Route: 048
     Dates: start: 20201229

REACTIONS (5)
  - Heart rate increased [Unknown]
  - Joint stiffness [Unknown]
  - Arthralgia [Unknown]
  - Bone pain [Unknown]
  - Fatigue [Unknown]
